FAERS Safety Report 6042518-4 (Version None)
Quarter: 2009Q1

REPORT INFORMATION
  Report Type: 
  Country: None (occurrence: None)
  Receive Date: 20090116
  Receipt Date: 20080728
  Transmission Date: 20090719
  Serious: Yes (Life-Threatening, Other)
  Sender: FDA-Public Use
  Company Number: US-JNJCH-2008019730

PATIENT
  Age: 6 Year
  Sex: Female
  Weight: 27.2 kg

DRUGS (1)
  1. POLYSPORIN OINTMENT [Suspect]
     Indication: WOUND
     Dosage: TEXT:COVER AREA ONCE
     Route: 061

REACTIONS (4)
  - ABDOMINAL PAIN [None]
  - ANAPHYLACTIC SHOCK [None]
  - SIMILAR REACTION ON PREVIOUS EXPOSURE TO DRUG [None]
  - SINUSITIS [None]
